FAERS Safety Report 20941965 (Version 1)
Quarter: 2022Q2

REPORT INFORMATION
  Report Type: Spontaneous
  Country: DK (occurrence: DK)
  Receive Date: 20220610
  Receipt Date: 20220610
  Transmission Date: 20220721
  Serious: Yes (Death, Hospitalization)
  Sender: FDA-Public Use
  Company Number: None

PATIENT
  Age: 72 Year
  Sex: Female

DRUGS (3)
  1. CARBOPLATIN [Suspect]
     Active Substance: CARBOPLATIN
     Indication: Lung neoplasm malignant
     Dosage: DOSAGE: REPORTED AS REDUCED DOSE. 4 DOSES IN TOTAL.?STRENGTH: 10MG/ML
     Route: 042
     Dates: start: 20201001, end: 20201229
  2. ZOLEDRONIC ACID [Concomitant]
     Active Substance: ZOLEDRONIC ACID
     Indication: Product used for unknown indication
     Dates: start: 20201001
  3. VINORELBINE [Concomitant]
     Active Substance: VINORELBINE TARTRATE
     Indication: Lung neoplasm malignant
     Dates: start: 20201001

REACTIONS (4)
  - Decreased appetite [Fatal]
  - Asthenia [Fatal]
  - Dyspnoea [Fatal]
  - Renal failure [Fatal]

NARRATIVE: CASE EVENT DATE: 20200101
